FAERS Safety Report 17734401 (Version 7)
Quarter: 2020Q4

REPORT INFORMATION
  Report Type: Report from Study
  Country: SE (occurrence: SE)
  Receive Date: 20200501
  Receipt Date: 20201110
  Transmission Date: 20210113
  Serious: Yes (Hospitalization, Other)
  Sender: FDA-Public Use
  Company Number: SE-PFIZER INC-2020171572

PATIENT
  Sex: Male
  Weight: 87 kg

DRUGS (56)
  1. TARGINIQ ER [Concomitant]
     Active Substance: NALOXONE HYDROCHLORIDE\OXYCODONE HYDROCHLORIDE
     Dosage: UNK
  2. RECTOGESIC [GLYCERYL TRINITRATE] [Concomitant]
     Active Substance: NITROGLYCERIN
     Dosage: UNK
     Dates: start: 20200508
  3. PHENOXYMETHYLPENICILLIN [Concomitant]
     Active Substance: PENICILLIN V
     Dosage: UNK
  4. NOVORAPID [Concomitant]
     Active Substance: INSULIN ASPART
     Dosage: UNK (INJECTION)
  5. FLUCONAZOLE ACTAVIS [Concomitant]
     Active Substance: FLUCONAZOLE
     Dosage: UNK
     Dates: start: 20200508
  6. SCHERIPROCT [CINCHOCAINE HYDROCHLORIDE;CLEMIZOLE UNDECYLENATE;HEXACHLO [Concomitant]
     Dosage: UNK
     Dates: start: 20200508
  7. XYLOCAINE #1 [Concomitant]
     Active Substance: LIDOCAINE
     Dosage: UNK
  8. OXAZEPAM. [Concomitant]
     Active Substance: OXAZEPAM
  9. ETOPOSIDE. [Suspect]
     Active Substance: ETOPOSIDE
     Indication: NON-HODGKIN^S LYMPHOMA
     Dosage: 219 MG, 4X/DAY
     Route: 042
     Dates: start: 20200316, end: 20200318
  10. IMOVANE [Concomitant]
     Active Substance: ZOPICLONE
     Dosage: UNK
     Dates: start: 20200508
  11. MOVICOL [Concomitant]
     Active Substance: POLYETHYLENE GLYCOL 3350\POTASSIUM CHLORIDE\SODIUM BICARBONATE\SODIUM CHLORIDE
     Dosage: UNK
  12. RINGER ACETATE [Concomitant]
     Active Substance: CALCIUM CHLORIDE\POTASSIUM CHLORIDE\SODIUM ACETATE
     Dosage: 1000 ML (INFUSION)
     Dates: start: 20200509
  13. OXASCAND [Concomitant]
     Active Substance: OXAZEPAM
     Dosage: UNK
     Dates: start: 20200508
  14. PIPERACILLIN. [Concomitant]
     Active Substance: PIPERACILLIN SODIUM
     Dosage: UNK
  15. CYTARABINE. [Suspect]
     Active Substance: CYTARABINE
     Indication: NON-HODGKIN^S LYMPHOMA
     Dosage: 430 MG, DAILY (ALSO REPORTED AS 215 MG EVERY 12 HOURS)
     Route: 042
     Dates: start: 20200501, end: 20200504
  16. PEVARYL [ECONAZOLE NITRATE] [Concomitant]
     Dosage: UNK
  17. FURIX [CEFUROXIME] [Concomitant]
     Active Substance: CEFUROXIME
     Dosage: UNK, 1X/DAY
     Dates: start: 20200508
  18. CELEBRA [Concomitant]
     Active Substance: CELECOXIB
     Dosage: UNK
  19. ATARAX [ALPRAZOLAM] [Concomitant]
     Active Substance: ALPRAZOLAM
     Dosage: UNK
  20. SCHERIPROCT [CINCHOCAINE HYDROCHLORIDE;CLEMIZOLE UNDECYLENATE;HEXACHLO [Concomitant]
     Dosage: UNK
     Dates: start: 20200508
  21. ZOPICLONE [Concomitant]
     Active Substance: ZOPICLONE
     Dosage: UNK
  22. DELTISON [PREDNISONE] [Concomitant]
     Dosage: UNK
  23. CAFFEINE. [Concomitant]
     Active Substance: CAFFEINE
     Dosage: UNK
  24. SODIUM BICARBONATE. [Concomitant]
     Active Substance: SODIUM BICARBONATE
     Dosage: UNK
  25. ACTILYSE [Concomitant]
     Active Substance: ALTEPLASE
     Dosage: UNK (INJECTION)
  26. AMITRIPTYLIN ORIFARM [Concomitant]
     Dosage: UNK
     Dates: start: 20200508
  27. SOLU-CORTEF [Concomitant]
     Active Substance: HYDROCORTISONE SODIUM SUCCINATE
     Dosage: UNK
  28. VALTREX [Concomitant]
     Active Substance: VALACYCLOVIR HYDROCHLORIDE
     Dosage: UNK
     Dates: start: 20200508
  29. OXYCONTIN [Concomitant]
     Active Substance: OXYCODONE HYDROCHLORIDE
     Dosage: UNK
  30. DIMOR [Concomitant]
     Active Substance: LOPERAMIDE
     Dosage: UNK
  31. MEROPENEM. [Concomitant]
     Active Substance: MEROPENEM
     Dosage: UNK
  32. PETIDIN MEDA [Concomitant]
     Dosage: UNK (INJECTION)
  33. BACTRIM [Concomitant]
     Active Substance: SULFAMETHOXAZOLE\TRIMETHOPRIM
     Dosage: UNK
  34. CARBOPLATIN. [Suspect]
     Active Substance: CARBOPLATIN
     Indication: NON-HODGKIN^S LYMPHOMA
     Dosage: 575 MG, 1X/DAY
     Route: 042
     Dates: start: 20200317, end: 20200317
  35. RITUXIMAB. [Suspect]
     Active Substance: RITUXIMAB
     Indication: NON-HODGKIN^S LYMPHOMA
     Dosage: 820 MG, 1X/DAY
     Route: 042
     Dates: start: 20200318, end: 20200318
  36. VANCOMYCIN ORION [Concomitant]
     Dosage: UNK
  37. DEXAMETASON ABCUR [Concomitant]
     Dosage: UNK
  38. CILAXORAL [Concomitant]
     Active Substance: SODIUM PICOSULFATE
     Dosage: UNK
  39. CYKLOKAPRON [Concomitant]
     Active Substance: TRANEXAMIC ACID
     Dosage: UNK
  40. PLATELETS [Concomitant]
     Active Substance: HUMAN PLATELET, ALLOGENIC
     Dosage: UNK
  41. ORUDIS [Concomitant]
     Active Substance: KETOPROFEN
     Dosage: UNK
  42. MELPHALAN. [Suspect]
     Active Substance: MELPHALAN
     Indication: NON-HODGKIN^S LYMPHOMA
     Dosage: 45 MG, 1X/DAY
     Route: 042
     Dates: start: 20200430, end: 20200430
  43. CARMUSTINE. [Suspect]
     Active Substance: CARMUSTINE
     Indication: NON-HODGKIN^S LYMPHOMA
     Dosage: 200 MG, 1X/DAY
     Route: 042
     Dates: start: 20200429, end: 20200429
  44. ZARZIO [Concomitant]
     Active Substance: FILGRASTIM
     Dosage: UNK (INJECTION)
  45. FRAGMIN [Concomitant]
     Active Substance: DALTEPARIN SODIUM
     Dosage: 5000 IU, 1X/DAY (INJECTION)
     Dates: start: 20200508
  46. PARACETAMOL [Concomitant]
     Active Substance: ACETAMINOPHEN
     Dosage: UNK
  47. OXYNORM [Concomitant]
     Active Substance: OXYCODONE HYDROCHLORIDE
     Dosage: UNK
     Dates: start: 20200508
  48. ETOPOSIDE. [Suspect]
     Active Substance: ETOPOSIDE
     Dosage: 100 MG, 4X/DAY (400 MG DAILY)
     Route: 042
     Dates: start: 20200501, end: 20200504
  49. IFOSFAMIDE. [Suspect]
     Active Substance: IFOSFAMIDE
     Indication: NON-HODGKIN^S LYMPHOMA
     Dosage: 10950 MG, 1X/DAY
     Route: 042
     Dates: start: 20200317, end: 20200318
  50. SONOVUE [Concomitant]
     Active Substance: SULFUR HEXAFLUORIDE
     Dosage: UNK
  51. REVLIMID [Concomitant]
     Active Substance: LENALIDOMIDE
     Dosage: UNK
  52. OMEPRAZOLE ACTAVIS [Concomitant]
     Active Substance: OMEPRAZOLE
     Dosage: UNK, 2X/DAY
     Dates: start: 20200508
  53. DIAZEPAM. [Concomitant]
     Active Substance: DIAZEPAM
     Dosage: UNK
  54. METOCLOPRAMIDE. [Concomitant]
     Active Substance: METOCLOPRAMIDE
     Dosage: UNK
  55. RED BLOOD CELLS, CONCENTRATED [Concomitant]
     Active Substance: HUMAN RED BLOOD CELL
     Dosage: UNK
  56. ONDANSETRON [Concomitant]
     Active Substance: ONDANSETRON
     Dosage: UNK

REACTIONS (4)
  - Febrile neutropenia [Recovered/Resolved with Sequelae]
  - Pyrexia [Recovered/Resolved]
  - Device related infection [Recovered/Resolved with Sequelae]
  - Femur fracture [Recovered/Resolved]

NARRATIVE: CASE EVENT DATE: 20200325
